FAERS Safety Report 22192949 (Version 1)
Quarter: 2023Q2

REPORT INFORMATION
  Report Type: Spontaneous
  Country: US (occurrence: None)
  Receive Date: 20230410
  Receipt Date: 20230410
  Transmission Date: 20230721
  Serious: Yes (Other)
  Sender: FDA-Public Use
  Company Number: None

PATIENT
  Sex: Female

DRUGS (1)
  1. BUPRENORPHINE\NALOXONE [Suspect]
     Active Substance: BUPRENORPHINE\NALOXONE
     Indication: Drug dependence

REACTIONS (4)
  - Tooth erosion [None]
  - Product solubility abnormal [None]
  - Toothache [None]
  - Incorrect dose administered by product [None]

NARRATIVE: CASE EVENT DATE: 20230406
